FAERS Safety Report 5582817-3 (Version None)
Quarter: 2007Q4

REPORT INFORMATION
  Report Type: 
  Country: None (occurrence: None)
  Receive Date: 20071231
  Receipt Date: 20071218
  Transmission Date: 20080405
  Serious: Yes (Hospitalization)
  Sender: FDA-Public Use
  Company Number: CLOF-10774

PATIENT
  Age: 65 Year
  Sex: Female

DRUGS (13)
  1. CLOLAR (CLOFARABINE) SOLUTION FOR INFUSION [Suspect]
     Indication: ACUTE MYELOID LEUKAEMIA
     Dosage: 35 MG, QD, INTRAVENOUS
     Route: 042
     Dates: start: 20071017, end: 20071019
  2. FLUCLOXACILLIN (FLUCLOXACILLIN SODIUM) [Concomitant]
  3. AMLODIPINE (AMLODIPINE MESILATE) [Concomitant]
  4. LEVOTHYROXINE SODIUM [Concomitant]
  5. CO-AMILOFRUSE (AMILORIDE HYDROCHLORIDE, FUROSEMIDE) [Concomitant]
  6. BISOPROLOL FUMARATE [Concomitant]
  7. TRAMADOL HCL [Concomitant]
  8. SIMVASTATIN [Concomitant]
  9. CYCLIZINE (CYCLIZINE) [Concomitant]
  10. LANSOPRAZOLE [Concomitant]
  11. FLUCONAZOLE [Concomitant]
  12. TOLTERODINE TARTRATE [Concomitant]
  13. BENDROFLUAZIDE (BENDROFLUMETHIAZIDE) [Concomitant]

REACTIONS (10)
  - ABDOMINAL DISTENSION [None]
  - CARDIAC FAILURE CONGESTIVE [None]
  - HAEMOGLOBIN DECREASED [None]
  - HEADACHE [None]
  - HYPOKALAEMIA [None]
  - LEFT VENTRICULAR HYPERTROPHY [None]
  - LETHARGY [None]
  - PLATELET COUNT DECREASED [None]
  - RENAL IMPAIRMENT [None]
  - WEIGHT INCREASED [None]
